FAERS Safety Report 12958139 (Version 1)
Quarter: 2016Q4

REPORT INFORMATION
  Report Type: Spontaneous
  Country: US (occurrence: US)
  Receive Date: 20161120
  Receipt Date: 20161120
  Transmission Date: 20170207
  Serious: No
  Sender: FDA-Public Use
  Company Number: US-TAIHO ONCOLOGY INC-EU-2016-02978

PATIENT
  Age: 68 Year
  Sex: Female

DRUGS (11)
  1. LONSURF [Suspect]
     Active Substance: TIPIRACIL HYDROCHLORIDE\TRIFLURIDINE
     Indication: COLON CANCER
     Dosage: DOSING UNKNOWN
     Route: 048
  2. RAMIPRIL. [Concomitant]
     Active Substance: RAMIPRIL
     Dosage: NI
  3. AMITRIPTYLINE [Concomitant]
     Active Substance: AMITRIPTYLINE
     Dosage: NI
  4. AMLODIPINE [Concomitant]
     Active Substance: AMLODIPINE BESYLATE
     Dosage: NI
  5. GLIMEPIRIDE. [Concomitant]
     Active Substance: GLIMEPIRIDE
     Dosage: NI
  6. COLECALCIFEROL [Concomitant]
     Active Substance: CHOLECALCIFEROL
     Dosage: NI
  7. ACETYLSALICYLIC ACID [Concomitant]
     Active Substance: ASPIRIN
     Dosage: NI
  8. METOPROLOL. [Concomitant]
     Active Substance: METOPROLOL
     Dosage: NI
  9. EFFEXOR [Concomitant]
     Active Substance: VENLAFAXINE HYDROCHLORIDE
     Dosage: NI
  10. METFORMIN [Concomitant]
     Active Substance: METFORMIN HYDROCHLORIDE
     Dosage: NI
  11. FERROUS GLUCONATE [Concomitant]
     Active Substance: FERROUS GLUCONATE
     Dosage: NI

REACTIONS (1)
  - Eczema [Unknown]

NARRATIVE: CASE EVENT DATE: 201610
